FAERS Safety Report 10471767 (Version 2)
Quarter: 2015Q2

REPORT INFORMATION
  Report Type: Spontaneous
  Country: GB (occurrence: GB)
  Receive Date: 20140924
  Receipt Date: 20150604
  Transmission Date: 20150821
  Serious: Yes (Hospitalization, Other)
  Sender: FDA-Public Use
  Company Number: GB-AUROBINDO-AUR-APL-2014-09956

PATIENT

DRUGS (3)
  1. OMEPRAZOLE. [Concomitant]
     Active Substance: OMEPRAZOLE
     Indication: PRODUCT USED FOR UNKNOWN INDICATION
     Dosage: 20 MG, TWO TIMES A DAY
     Route: 065
     Dates: start: 20140818, end: 20140825
  2. METRONIDAZOLE. [Concomitant]
     Active Substance: METRONIDAZOLE
     Indication: PRODUCT USED FOR UNKNOWN INDICATION
     Dosage: 400 MG, TWO TIMES A DAY
     Route: 065
     Dates: start: 20140818, end: 20140825
  3. CLARITHROMYCIN 250MG [Suspect]
     Active Substance: CLARITHROMYCIN
     Indication: HELICOBACTER INFECTION
     Dosage: 250 MG, TWO TIMES A DAY
     Route: 048
     Dates: start: 20140818, end: 20140825

REACTIONS (4)
  - Henoch-Schonlein purpura [Recovered/Resolved]
  - Contusion [Recovered/Resolved]
  - Jaundice cholestatic [Recovered/Resolved]
  - Microalbuminuria [Recovered/Resolved]

NARRATIVE: CASE EVENT DATE: 20140825
